FAERS Safety Report 14943114 (Version 1)
Quarter: 2018Q3

REPORT INFORMATION
  Report Type: Spontaneous
  Country: US (occurrence: US)
  Receive Date: 20180528
  Receipt Date: 20180528
  Transmission Date: 20181010
  Serious: No
  Sender: FDA-Public Use
  Company Number: US-JNJFOC-20180511701

PATIENT
  Age: 77 Year
  Sex: Male
  Weight: 85.28 kg

DRUGS (3)
  1. ZYRTEC ALLERGY [Suspect]
     Active Substance: CETIRIZINE HYDROCHLORIDE
     Route: 065
  2. ZYRTEC ALLERGY [Suspect]
     Active Substance: CETIRIZINE HYDROCHLORIDE
     Indication: MULTIPLE ALLERGIES
     Route: 065
     Dates: start: 20180504
  3. CHLOR?TRIMETON [Concomitant]
     Active Substance: CHLORPHENIRAMINE MALEATE
     Indication: NASAL DRYNESS
     Route: 065

REACTIONS (6)
  - Laceration [Recovered/Resolved]
  - Drug administration error [Unknown]
  - Product storage error [Unknown]
  - Product packaging issue [Unknown]
  - Product blister packaging issue [None]
  - Product use complaint [None]

NARRATIVE: CASE EVENT DATE: 20180504
